FAERS Safety Report 4518401-X (Version None)
Quarter: 2004Q4

REPORT INFORMATION
  Report Type: 
  Country: None (occurrence: None)
  Receive Date: 20041102
  Receipt Date: 20031219
  Transmission Date: 20050328
  Serious: Yes (Other)
  Sender: FDA-Public Use
  Company Number: PHEH2003US09700

PATIENT
  Age: 77 Year
  Sex: Female
  Weight: 81.6 kg

DRUGS (3)
  1. LESCOL XL [Suspect]
     Indication: HYPERLIPIDAEMIA
     Dosage: 80 MG QD ORAL
     Route: 048
     Dates: start: 20030827, end: 20030930
  2. TENORETIC 100 [Concomitant]
  3. MAXZIDE [Concomitant]

REACTIONS (2)
  - ALANINE AMINOTRANSFERASE INCREASED [None]
  - ASPARTATE AMINOTRANSFERASE INCREASED [None]
